FAERS Safety Report 5740839-3 (Version None)
Quarter: 2008Q2

REPORT INFORMATION
  Report Type: 
  Country: None (occurrence: None)
  Receive Date: 20080516
  Receipt Date: 20080507
  Transmission Date: 20081010
  Serious: Yes (Hospitalization, Other)
  Sender: FDA-Public Use
  Company Number: BR-PFIZER INC-2008002169

PATIENT
  Sex: Male
  Weight: 70 kg

DRUGS (4)
  1. CARDURAN XL [Suspect]
     Indication: URINARY INCONTINENCE
     Route: 048
     Dates: start: 20070101, end: 20080101
  2. OXYBUTYNIN CHLORIDE [Suspect]
     Route: 048
  3. HIDANTAL [Suspect]
     Route: 048
  4. GARDENAL SODIUM [Concomitant]
     Route: 048

REACTIONS (7)
  - ALOPECIA [None]
  - BALANCE DISORDER [None]
  - BRAIN NEOPLASM [None]
  - CONVULSION [None]
  - LOSS OF CONSCIOUSNESS [None]
  - MEDICATION ERROR [None]
  - OPTIC NERVE NEOPLASM [None]
